FAERS Safety Report 10948687 (Version 1)
Quarter: 2015Q1

REPORT INFORMATION
  Report Type: Spontaneous
  Country: US (occurrence: US)
  Receive Date: 20150324
  Receipt Date: 20150324
  Transmission Date: 20150721
  Serious: No
  Sender: FDA-Public Use
  Company Number: US-TEVA-534524USA

PATIENT
  Age: 42 Year
  Sex: Female

DRUGS (1)
  1. ACETAMINOPHEN AND CODEINE [Suspect]
     Active Substance: ACETAMINOPHEN\CODEINE PHOSPHATE
     Indication: ANALGESIC THERAPY

REACTIONS (17)
  - Amnesia [Unknown]
  - Constipation [Unknown]
  - Feeling cold [Unknown]
  - Neuralgia [Unknown]
  - Fatigue [Unknown]
  - Dry mouth [Unknown]
  - Peripheral swelling [Unknown]
  - Myalgia [Unknown]
  - Influenza like illness [Unknown]
  - Withdrawal syndrome [Unknown]
  - Adverse event [Unknown]
  - Rheumatoid factor increased [Unknown]
  - Hypoaesthesia [Unknown]
  - Paraesthesia [Unknown]
  - Pain [Unknown]
  - Dizziness [Unknown]
  - Weight increased [Unknown]
